FAERS Safety Report 17995234 (Version 1)
Quarter: 2020Q3

REPORT INFORMATION
  Report Type: Spontaneous
  Country: CN (occurrence: CN)
  Receive Date: 20200708
  Receipt Date: 20200708
  Transmission Date: 20201103
  Serious: Yes (Other)
  Sender: FDA-Public Use
  Company Number: CN-PFIZER INC-2020258216

PATIENT
  Age: 31 Year
  Sex: Female
  Weight: 45 kg

DRUGS (4)
  1. SODIUM CHLORIDE. [Concomitant]
     Active Substance: SODIUM CHLORIDE
     Indication: TARGETED CANCER THERAPY
     Dosage: 340 ML, 1X/DAY
     Route: 041
     Dates: start: 20200509, end: 20200509
  2. SODIUM CHLORIDE. [Concomitant]
     Active Substance: SODIUM CHLORIDE
     Indication: NEOPLASM MALIGNANT
  3. METHOTREXATE. [Suspect]
     Active Substance: METHOTREXATE
     Indication: NEOPLASM MALIGNANT
  4. METHOTREXATE. [Suspect]
     Active Substance: METHOTREXATE
     Indication: TARGETED CANCER THERAPY
     Dosage: 16 G, 1X/DAY
     Route: 041
     Dates: start: 20200509, end: 20200509

REACTIONS (3)
  - Hypoaesthesia [Recovered/Resolved]
  - Drug-induced liver injury [Recovered/Resolved]
  - Drug level increased [Recovered/Resolved]

NARRATIVE: CASE EVENT DATE: 20200510
